FAERS Safety Report 13321795 (Version 3)
Quarter: 2017Q1

REPORT INFORMATION
  Report Type: Spontaneous
  Country: US (occurrence: US)
  Receive Date: 20170309
  Receipt Date: 20170323
  Transmission Date: 20170428
  Serious: Yes (Death, Other)
  Sender: FDA-Public Use
  Company Number: US-B.I. PHARMACEUTICALS,INC./RIDGEFIELD-2017-BI-013292

PATIENT
  Age: 80 Year
  Sex: Male

DRUGS (1)
  1. OFEV [Suspect]
     Active Substance: NINTEDANIB
     Indication: IDIOPATHIC PULMONARY FIBROSIS
     Route: 048
     Dates: start: 2016

REACTIONS (5)
  - Respiratory failure [Unknown]
  - Acute kidney injury [Unknown]
  - Normochromic normocytic anaemia [Unknown]
  - Death [Fatal]
  - Malnutrition [Unknown]

NARRATIVE: CASE EVENT DATE: 20170306
